FAERS Safety Report 25971980 (Version 1)
Quarter: 2025Q4

REPORT INFORMATION
  Report Type: Spontaneous
  Country: US (occurrence: US)
  Receive Date: 20251029
  Receipt Date: 20251029
  Transmission Date: 20260117
  Serious: No
  Sender: ROCHE
  Company Number: US-ROCHE-10000420534

PATIENT

DRUGS (3)
  1. ALTEPLASE [Suspect]
     Active Substance: ALTEPLASE
     Indication: Therapeutic product effect decreased
     Dosage: QS TO 30 ML WITH NORMAL SALINE
     Route: 034
  2. PULMOZYME [Suspect]
     Active Substance: DORNASE ALFA
     Indication: Therapeutic product effect decreased
     Dosage: QS TO 30 ML WITH NORMAL SALINE
     Route: 034
  3. SODIUM CHLORIDE [Concomitant]
     Active Substance: SODIUM CHLORIDE

REACTIONS (3)
  - Off label use [Unknown]
  - Off label use [Unknown]
  - No adverse event [Unknown]
